FAERS Safety Report 18312622 (Version 2)
Quarter: 2020Q4

REPORT INFORMATION
  Report Type: Spontaneous
  Country: CN (occurrence: CN)
  Receive Date: 20200925
  Receipt Date: 20201005
  Transmission Date: 20210113
  Serious: Yes (Other)
  Sender: FDA-Public Use
  Company Number: CN-ASTRAZENECA-2020SF23005

PATIENT
  Age: 30 Year
  Sex: Female

DRUGS (3)
  1. TAGRISSO [Suspect]
     Active Substance: OSIMERTINIB
     Indication: LUNG NEOPLASM MALIGNANT
     Route: 048
     Dates: start: 2020, end: 2020
  2. TAGRISSO [Suspect]
     Active Substance: OSIMERTINIB
     Indication: LUNG NEOPLASM MALIGNANT
     Dosage: AT NOON
     Route: 048
     Dates: start: 20200915
  3. LYNPARZA [Suspect]
     Active Substance: OLAPARIB
     Indication: BREAST CANCER
     Dosage: TWO TABLETS OF LYNPARZA IN THE MORNING AND TWO TABLETS IN THE EVENING
     Route: 048
     Dates: start: 20200915

REACTIONS (5)
  - BRCA2 gene mutation [Unknown]
  - Breast cancer [Unknown]
  - EGFR gene mutation [Unknown]
  - Product use issue [Unknown]
  - Drug ineffective [Unknown]
